FAERS Safety Report 9203340 (Version 2)
Quarter: 2014Q1

REPORT INFORMATION
  Report Type: Spontaneous
  Country: US (occurrence: US)
  Receive Date: 20130402
  Receipt Date: 20140121
  Transmission Date: 20141002
  Serious: Yes (Disabling, Other)
  Sender: FDA-Public Use
  Company Number: US-BAYER-2013-038490

PATIENT
  Age: 33 Year
  Sex: Female

DRUGS (16)
  1. YASMIN [Suspect]
  2. YAZ [Suspect]
  3. CITALOPRAM [Concomitant]
  4. ABILIFY [Concomitant]
  5. CLARITIN [Concomitant]
  6. SYNTHROID [Concomitant]
  7. PREVACID [Concomitant]
  8. DEPAKOTE [Concomitant]
  9. NORCO [Concomitant]
  10. GLUCOPHAGE [Concomitant]
  11. NAPROSYN [Concomitant]
  12. MICROBID [Concomitant]
  13. NIACIN [Concomitant]
  14. NORTRIPTYLINE [Concomitant]
  15. FLEXERIL [Concomitant]
  16. SEPTRA [Concomitant]

REACTIONS (6)
  - Gallbladder injury [None]
  - Cholecystitis chronic [None]
  - Injury [None]
  - General physical health deterioration [None]
  - Pain [None]
  - Emotional distress [None]
